FAERS Safety Report 7982344-X (Version None)
Quarter: 2011Q4

REPORT INFORMATION
  Report Type: 
  Country: None (occurrence: None)
  Receive Date: 20111215
  Receipt Date: 20111202
  Transmission Date: 20120403
  Serious: Yes (Hospitalization)
  Sender: FDA-Public Use
  Company Number: PHFR2011IE02429

PATIENT
  Sex: Female

DRUGS (3)
  1. VENLAFAXINE [Concomitant]
     Dosage: 225 MG, DAILY
  2. CLOZARIL [Suspect]
     Indication: SCHIZOPHRENIA
     Dosage: 100 MG IN MORNING AND 200 MG IN AFTERNOON
     Route: 048
     Dates: start: 20101104, end: 20110407
  3. CLOZARIL [Suspect]
     Dosage: 400 MG
     Route: 048
     Dates: start: 20101214

REACTIONS (3)
  - OVERDOSE [None]
  - ELECTROCARDIOGRAM QT PROLONGED [None]
  - DISORIENTATION [None]
